FAERS Safety Report 5566545-6 (Version None)
Quarter: 2007Q4

REPORT INFORMATION
  Report Type: 
  Country: None (occurrence: None)
  Receive Date: 20071219
  Receipt Date: 20071205
  Transmission Date: 20080405
  Serious: Yes (Disabling, Other)
  Sender: FDA-Public Use
  Company Number: US-ELI_LILLY_AND_COMPANY-US200712001236

PATIENT
  Sex: Female

DRUGS (2)
  1. FORTEO [Suspect]
     Dosage: UNK, UNK
  2. FORTEO [Suspect]
     Dosage: UNK, UNK
     Dates: start: 20070901, end: 20071001

REACTIONS (4)
  - ACCIDENT [None]
  - BONE DENSITY DECREASED [None]
  - IMMOBILE [None]
  - NAUSEA [None]
